FAERS Safety Report 11097823 (Version 4)
Quarter: 2015Q2

REPORT INFORMATION
  Report Type: Spontaneous
  Country: US (occurrence: US)
  Receive Date: 20150507
  Receipt Date: 20150612
  Transmission Date: 20150821
  Serious: Yes (Other)
  Sender: FDA-Public Use
  Company Number: US-BAYER-2015-194087

PATIENT
  Age: 26 Year
  Sex: Female
  Weight: 89.98 kg

DRUGS (1)
  1. MIRENA [Suspect]
     Active Substance: LEVONORGESTREL
     Indication: CONTRACEPTION
     Dosage: 20 MCG/24HR, CONT
     Route: 015
     Dates: start: 20150305, end: 20150427

REACTIONS (8)
  - Off label use [None]
  - Device expulsion [None]
  - Device use error [None]
  - Dysmenorrhoea [None]
  - Weight increased [None]
  - Genital haemorrhage [None]
  - Procedural haemorrhage [Recovered/Resolved]
  - Abdominal pain lower [None]

NARRATIVE: CASE EVENT DATE: 2015
